FAERS Safety Report 8571142-4 (Version None)
Quarter: 2012Q3

REPORT INFORMATION
  Report Type: 
  Country: None (occurrence: None)
  Receive Date: 20120806
  Receipt Date: 20120730
  Transmission Date: 20120928
  Serious: No
  Sender: FDA-Public Use
  Company Number: US-PFIZER INC-2012185791

PATIENT
  Age: 44 Year
  Sex: Female

DRUGS (2)
  1. LEVOXYL [Suspect]
     Dosage: 100 UG, UNK
     Dates: start: 20110101
  2. LEVOTHYROXINE SODIUM [Suspect]
     Dosage: 100 UG, UNK
     Dates: start: 20060101, end: 20110101

REACTIONS (5)
  - HEADACHE [None]
  - MYALGIA [None]
  - RASH [None]
  - DYSPEPSIA [None]
  - ARTHRALGIA [None]
